FAERS Safety Report 8087982-4 (Version None)
Quarter: 2012Q1

REPORT INFORMATION
  Report Type: 
  Country: None (occurrence: None)
  Receive Date: 20120131
  Receipt Date: 20120123
  Transmission Date: 20120608
  Serious: Yes (Hospitalization)
  Sender: FDA-Public Use
  Company Number: TR-ACCORD-012133

PATIENT
  Age: 15 Year
  Sex: Male

DRUGS (2)
  1. PREDNISOLONE [Suspect]
     Indication: IMMUNOSUPPRESSION
     Route: 048
  2. TACROLIMUS [Suspect]
     Indication: IMMUNOSUPPRESSION
     Dosage: INITIATED ON THE FIFTH DAY AT 0.05 MG/KG/DOSE, IN TWO DOSES

REACTIONS (2)
  - BRUCELLOSIS [None]
  - PANCYTOPENIA [None]
